FAERS Safety Report 5003102-4 (Version None)
Quarter: 2006Q2

REPORT INFORMATION
  Report Type: 
  Country: None (occurrence: None)
  Receive Date: 20060516
  Receipt Date: 20060310
  Transmission Date: 20061013
  Serious: Yes (Hospitalization)
  Sender: FDA-Public Use
  Company Number: US-ROCHE-440094

PATIENT
  Age: 55 Year
  Sex: Male
  Weight: 53.5 kg

DRUGS (5)
  1. PEGASYS [Suspect]
     Dosage: DISCONTINUED AFTER THE 5TH SHOT.
     Route: 065
     Dates: start: 20050923, end: 20051015
  2. RIBAVIRIN [Suspect]
     Dosage: DISCONTINUED AFTER THE 5TH SHOT OF PEG-INTERFERON ALFA 2A.
     Route: 048
     Dates: start: 20050923, end: 20051015
  3. TERAZOSIN HCL [Concomitant]
  4. CLONIDINE [Concomitant]
     Dosage: INDICATION REPORTED AS HPN.
  5. LOPRESSOR [Concomitant]
     Dosage: INDICATION REPORTED AS HPN.

REACTIONS (3)
  - BLOOD PRESSURE INCREASED [None]
  - COLITIS ULCERATIVE [None]
  - HAEMORRHAGE [None]
